FAERS Safety Report 4397812-X (Version None)
Quarter: 2004Q2

REPORT INFORMATION
  Report Type: 
  Country: None (occurrence: None)
  Receive Date: 20040621
  Receipt Date: 20040209
  Transmission Date: 20050107
  Serious: Yes (Death, Other)
  Sender: FDA-Public Use
  Company Number: USA-2004-0013024

PATIENT
  Age: 43 Year
  Sex: Male
  Weight: 118.5 kg

DRUGS (8)
  1. OXYCODONE HCL [Suspect]
  2. HEROIN (DIAMORPHINE) [Suspect]
  3. COCAINE (COCAINE) [Suspect]
  4. CODEINE (CODEINE) [Suspect]
  5. DIPHENHYDRAMINE HCL [Suspect]
  6. CAFFEINE (CAFFEINE) [Suspect]
  7. ETHANOL (ETHANOL) [Suspect]
  8. NICOTINE [Suspect]

REACTIONS (3)
  - ACCIDENTAL OVERDOSE [None]
  - MULTIPLE DRUG OVERDOSE [None]
  - POLYSUBSTANCE ABUSE [None]
